FAERS Safety Report 20803740 (Version 1)
Quarter: 2022Q2

REPORT INFORMATION
  Report Type: Report from Study
  Country: US (occurrence: US)
  Receive Date: 20220509
  Receipt Date: 20220509
  Transmission Date: 20220720
  Serious: Yes (Other)
  Sender: FDA-Public Use
  Company Number: US-NOVARTISTESTPH-NVSC2022US105425

PATIENT
  Sex: Male

DRUGS (2)
  1. TASIGNA [Suspect]
     Active Substance: NILOTINIB
     Indication: Chronic myeloid leukaemia
     Dosage: UNK
     Route: 065
     Dates: start: 2006
  2. TASIGNA [Suspect]
     Active Substance: NILOTINIB
     Dosage: UNK (RESTARTED YESTERDAY)
     Route: 065

REACTIONS (2)
  - Cerebrovascular accident [Unknown]
  - Nausea [Unknown]
